FAERS Safety Report 22684511 (Version 2)
Quarter: 2023Q4

REPORT INFORMATION
  Report Type: Spontaneous
  Country: NL (occurrence: NL)
  Receive Date: 20230710
  Receipt Date: 20231009
  Transmission Date: 20240110
  Serious: Yes (Life-Threatening, Hospitalization)
  Sender: FDA-Public Use
  Company Number: None

PATIENT
  Age: 68 Year
  Sex: Female
  Weight: 65 kg

DRUGS (14)
  1. CAPECITABINE [Suspect]
     Active Substance: CAPECITABINE
     Indication: Gastric cancer
     Dosage: 2DD150MG, STRENGTH: 500MG
     Dates: start: 20230516, end: 20230521
  2. OXALIPLATIN [Suspect]
     Active Substance: OXALIPLATIN
     Indication: Gastric cancer
     Dates: start: 20230516, end: 20230521
  3. ROSUVASTATIN [Concomitant]
     Active Substance: ROSUVASTATIN
     Dosage: TABLET, 10 MG (MILLIGRAM)
  4. ASPIRIN [Concomitant]
     Active Substance: ASPIRIN
     Dosage: TABLET, 80 MG (MILLIGRAM)
  5. SPIRONOLACTONE [Concomitant]
     Active Substance: SPIRONOLACTONE
     Dosage: TABLET, 12.5 MG (MILLIGRAM)
  6. TELMISARTAN [Concomitant]
     Active Substance: TELMISARTAN
     Dosage: TABLET, 40 MG (MILLIGRAM)
  7. BISOPROLOL [Concomitant]
     Active Substance: BISOPROLOL\BISOPROLOL FUMARATE
     Dosage: TABLET, 5 MG (MILLIGRAM)
  8. CALCIUM CARBONATE\CHOLECALCIFEROL [Concomitant]
     Active Substance: CALCIUM CARBONATE\CHOLECALCIFEROL
     Dosage: CHEWABLE TABLET, 1.25 G (GRAM)/800 UNITS
  9. BARNIDIPINE HYDROCHLORIDE [Concomitant]
     Active Substance: BARNIDIPINE HYDROCHLORIDE
     Dosage: MODIFIED-RELEASE CAPSULE, 10 MG (MILLIGRAMS)
  10. ONDANSETRON [Concomitant]
     Active Substance: ONDANSETRON
     Dosage: ORODISPERSIBLE TABLET, 8MG  (MILLIGRAM)
  11. METOCLOPRAMIDE [Concomitant]
     Active Substance: METOCLOPRAMIDE
     Dosage: TABLET, 10 MG (MILLIGRAM)
  12. DEXAMETHASONE [Concomitant]
     Active Substance: DEXAMETHASONE
     Dosage: TABLET, 4 MG (MILLIGRAM)
  13. AMOXICILLIN W/CLARITHROMYCIN/PANTOP [Concomitant]
     Dosage: GASTRO-RESISTANT TABLET, 1000/500/40 MG (MILLIGRAMS)
  14. CAPECITABINE [Suspect]
     Active Substance: CAPECITABINE
     Indication: Gastric cancer
     Dosage: 3DD500MG, STRENGTH: 500MG
     Dates: start: 20230516, end: 20230521

REACTIONS (1)
  - Posterior reversible encephalopathy syndrome [Recovered/Resolved]
